FAERS Safety Report 5028292-9 (Version None)
Quarter: 2006Q2

REPORT INFORMATION
  Report Type: 
  Country: None (occurrence: None)
  Receive Date: 20060613
  Receipt Date: 20060530
  Transmission Date: 20061013
  Serious: Yes (Hospitalization)
  Sender: FDA-Public Use
  Company Number: 225659

PATIENT
  Sex: Female

DRUGS (2)
  1. RAPTIVA [Suspect]
  2. PENCILLIN (PENICILLIN NOS) [Concomitant]

REACTIONS (2)
  - SKIN EXFOLIATION [None]
  - SKIN REACTION [None]
